FAERS Safety Report 5251500-6 (Version None)
Quarter: 2007Q1

REPORT INFORMATION
  Report Type: 
  Country: None (occurrence: None)
  Receive Date: 20070228
  Receipt Date: 20060607
  Transmission Date: 20070707
  Serious: No
  Sender: FDA-Public Use
  Company Number: US-GLAXOSMITHKLINE-A0606104A

PATIENT
  Age: 33 Year
  Sex: Female

DRUGS (2)
  1. LAMICTAL [Suspect]
     Indication: BIPOLAR DISORDER
     Dosage: 275MG PER DAY
     Route: 048
     Dates: start: 20051012
  2. SEROQUEL [Concomitant]
     Indication: INSOMNIA
     Dosage: 12.5MG AT NIGHT
     Route: 048

REACTIONS (1)
  - SUNBURN [None]
